FAERS Safety Report 8508024-X (Version None)
Quarter: 2012Q3

REPORT INFORMATION
  Report Type: 
  Country: None (occurrence: None)
  Receive Date: 20120713
  Receipt Date: 20120703
  Transmission Date: 20120928
  Serious: Yes (Other)
  Sender: FDA-Public Use
  Company Number: PHHY2011CA36303

PATIENT
  Sex: Female
  Weight: 36.281 kg

DRUGS (2)
  1. SANDOSTATIN LAR [Suspect]
     Dosage: 40 MG EVERY 4 WEEKS
     Route: 030
     Dates: end: 20120703
  2. SANDOSTATIN LAR [Suspect]
     Indication: CARCINOID TUMOUR
     Dosage: 40 MG EVERY 4 WEEKS
     Route: 030
     Dates: start: 20100106, end: 20120605

REACTIONS (11)
  - GENERAL PHYSICAL HEALTH DETERIORATION [None]
  - DYSPNOEA EXERTIONAL [None]
  - MUSCULAR WEAKNESS [None]
  - CONSTIPATION [None]
  - HYPOPHAGIA [None]
  - PRODUCTIVE COUGH [None]
  - BLOOD PRESSURE DECREASED [None]
  - WEIGHT DECREASED [None]
  - SOMNOLENCE [None]
  - ASTHENIA [None]
  - ABASIA [None]
